FAERS Safety Report 6130723-8 (Version None)
Quarter: 2009Q1

REPORT INFORMATION
  Report Type: 
  Country: None (occurrence: None)
  Receive Date: 20090323
  Receipt Date: 20090308
  Transmission Date: 20090719
  Serious: Yes (Other)
  Sender: FDA-Public Use
  Company Number: 2007S1006603

PATIENT
  Age: 59 Year
  Sex: Female
  Weight: 113.1725 kg

DRUGS (10)
  1. PHOSPHOSODA FLAVOR NOT SPECIFIED [Suspect]
     Indication: COLONOSCOPY
     Dosage: 90 ML; TOTAL; PO
     Route: 048
     Dates: start: 20040520, end: 20040520
  2. LISINOPRIL [Concomitant]
  3. HYDROCHLOORTHIAIDE [Concomitant]
  4. FOSAMAX [Concomitant]
  5. ALEVE [Concomitant]
  6. CITRACAL [Concomitant]
  7. OSTEO BI-FLEX [Concomitant]
  8. MULTIVITAMIN /00831701/ [Concomitant]
  9. METROGEL [Concomitant]
  10. CLOTRIMAZOLE [Concomitant]

REACTIONS (3)
  - DRUG TOXICITY [None]
  - HYPERPHOSPHATAEMIA [None]
  - RENAL FAILURE CHRONIC [None]
